FAERS Safety Report 9190209 (Version 1)
Quarter: 2013Q1

REPORT INFORMATION
  Report Type: Spontaneous
  Country: IT (occurrence: None)
  Receive Date: 20130322
  Receipt Date: 20130322
  Transmission Date: 20140127
  Serious: Yes (Hospitalization)
  Sender: FDA-Public Use
  Company Number: AUR-APL-2013-02348

PATIENT
  Age: 89 Year
  Sex: Male

DRUGS (10)
  1. LEVOFLOXACIN [Suspect]
     Dosage: 1 GM, 1 D, ORAL
     Route: 048
     Dates: start: 20130211, end: 20130220
  2. COUMADIN (WARFARIN SODIUM) [Suspect]
     Dosage: 1 DOSAGE FORMS, AS REQUIRED, ORAL
     Route: 048
     Dates: start: 20080101, end: 20130220
  3. PANTECTA (PANTOPRAZOLE SODIUM) [Concomitant]
  4. LASIX (FUROSEMIDE) [Concomitant]
  5. SPIRIVA (TIOTROPIUM BROMIDE) [Concomitant]
  6. PRADIF (TAMSULOSIN HYDROCHLORIDE) [Concomitant]
  7. ZYLORIC (ALLOPURINOL) [Concomitant]
  8. HUMULIN R (INSULIN HUMAN) [Concomitant]
  9. DILTIAZEM [Concomitant]
  10. FLUIMUCIL [Suspect]
     Route: 048
     Dates: start: 20130215, end: 20130220

REACTIONS (1)
  - Abdominal wall haematoma [None]
